FAERS Safety Report 7283944-5 (Version None)
Quarter: 2011Q1

REPORT INFORMATION
  Report Type: 
  Country: None (occurrence: None)
  Receive Date: 20110131
  Receipt Date: 20101231
  Transmission Date: 20110831
  Serious: Yes (Death)
  Sender: FDA-Public Use
  Company Number: AUR-APL-2011-00098

PATIENT
  Age: 78 Year
  Sex: Male

DRUGS (7)
  1. ZOLPIDEM [Suspect]
  2. CAFFEINE [Suspect]
  3. ALPRAZOLAM [Suspect]
     Dosage: ORAL
     Route: 048
  4. DONEPEZIL HCL [Suspect]
     Dosage: ORAL
     Route: 048
  5. VENLAFAXINE HYDROCHLORIDE [Suspect]
  6. PREDNISONE TAB [Suspect]
  7. CODEINE SYRUP [Suspect]
     Dosage: ORAL
     Route: 048

REACTIONS (4)
  - INTENTIONAL DRUG MISUSE [None]
  - CARDIAC ARREST [None]
  - COMPLETED SUICIDE [None]
  - TOXICITY TO VARIOUS AGENTS [None]
